FAERS Safety Report 9470598 (Version 1)
Quarter: 2013Q3

REPORT INFORMATION
  Report Type: Spontaneous
  Country: US (occurrence: None)
  Receive Date: 20130820
  Receipt Date: 20130820
  Transmission Date: 20140515
  Serious: No
  Sender: FDA-Public Use
  Company Number: None

PATIENT
  Age: 68 Year
  Sex: Female

DRUGS (1)
  1. PROLIA [Suspect]
     Indication: OSTEOPOROSIS PROPHYLAXIS
     Dosage: 60 MG 1 SHOT 2 TIMES A YEAR
     Dates: start: 20130201

REACTIONS (7)
  - Groin pain [None]
  - Walking aid user [None]
  - Walking aid user [None]
  - Wheelchair user [None]
  - Pelvic fracture [None]
  - Fracture [None]
  - Impaired healing [None]
